FAERS Safety Report 5144815-3 (Version None)
Quarter: 2006Q4

REPORT INFORMATION
  Report Type: 
  Country: None (occurrence: None)
  Receive Date: 20061103
  Receipt Date: 20061103
  Transmission Date: 20070319
  Serious: No
  Sender: FDA-Public Use
  Company Number: None

PATIENT
  Age: 52 Year
  Sex: Male

DRUGS (1)
  1. ISONIAZID [Suspect]
     Indication: TUBERCULOSIS SKIN TEST POSITIVE
     Dosage: 900 MG TWICE A WEEK PO
     Route: 048
     Dates: start: 20060815, end: 20061031

REACTIONS (1)
  - HEPATIC ENZYME INCREASED [None]
